FAERS Safety Report 9539116 (Version 1)
Quarter: 2013Q2

REPORT INFORMATION
  Report Type: Spontaneous
  Country: US (occurrence: None)
  Receive Date: 20130517
  Receipt Date: 20130517
  Transmission Date: 20140414
  Serious: No
  Sender: FDA-Public Use
  Company Number: 1000042441

PATIENT
  Age: 72 Year
  Sex: Male

DRUGS (6)
  1. VIIBRYD (VILAZODONE HYDROCHLORIDE) [Suspect]
  2. CASODEX (BICALUTAMIDE) (BICALUTAMIDE) [Concomitant]
  3. ZOCOR (SIMVASTATIN) (SIMVASTATIN) [Concomitant]
  4. DONNATAL (DONNATAL) (DONNATAL) [Concomitant]
  5. PRILOSEC (OMEPRAZOLE) (OMEPRAZOLE) [Concomitant]
  6. PROZAC (FLUOXETINE HYDROCHLORIDE) (FLUOXETINEHYDROCHLORIDE) [Concomitant]

REACTIONS (1)
  - Prostatic specific antigen increased [None]
